FAERS Safety Report 9509877 (Version 2)
Quarter: 2013Q3

REPORT INFORMATION
  Report Type: Spontaneous
  Country: US (occurrence: US)
  Receive Date: 20130909
  Receipt Date: 20130909
  Transmission Date: 20140515
  Serious: No
  Sender: FDA-Public Use
  Company Number: US-TEVA-427161USA

PATIENT
  Age: 19 Year
  Sex: Female

DRUGS (2)
  1. CLARAVIS [Suspect]
     Dates: start: 20130624, end: 20130718
  2. SEASUNIQUE [Concomitant]

REACTIONS (1)
  - Rash [Recovered/Resolved]
